APPROVED DRUG PRODUCT: AMLODIPINE BESYLATE
Active Ingredient: AMLODIPINE BESYLATE
Strength: EQ 5MG BASE
Dosage Form/Route: TABLET, ORALLY DISINTEGRATING;ORAL
Application: N022026 | Product #002
Applicant: SYNTHON PHARMACEUTICALS INC
Approved: Sep 27, 2007 | RLD: Yes | RS: No | Type: DISCN